FAERS Safety Report 9257633 (Version 1)
Quarter: 2013Q2

REPORT INFORMATION
  Report Type: Spontaneous
  Country: US (occurrence: US)
  Receive Date: 20130426
  Receipt Date: 20130426
  Transmission Date: 20140414
  Serious: Yes (Other)
  Sender: FDA-Public Use
  Company Number: US-JNJFOC-20130413458

PATIENT
  Sex: Male

DRUGS (4)
  1. ROGAINE EXTRA STRENGTH FOR MEN [Suspect]
     Route: 061
  2. ROGAINE EXTRA STRENGTH FOR MEN [Suspect]
     Indication: PRODUCT USED FOR UNKNOWN INDICATION
     Route: 061
  3. ROGAINE FOR MEN EXTRA STRENGTH FOAM UNSCENTED [Suspect]
     Route: 061
  4. ROGAINE FOR MEN EXTRA STRENGTH FOAM UNSCENTED [Suspect]
     Indication: PRODUCT USED FOR UNKNOWN INDICATION
     Route: 061

REACTIONS (1)
  - Retinopathy [Unknown]
